FAERS Safety Report 9016098 (Version 1)
Quarter: 2013Q1

REPORT INFORMATION
  Report Type: Spontaneous
  Country: US (occurrence: US)
  Receive Date: 20130116
  Receipt Date: 20130116
  Transmission Date: 20140127
  Serious: Yes (Hospitalization, Other)
  Sender: FDA-Public Use
  Company Number: PHHY2013US002609

PATIENT
  Age: 47 Year
  Sex: Female

DRUGS (1)
  1. HYDROCHLOROTHIAZIDE [Suspect]
     Dosage: 12.5 MG, DAILY

REACTIONS (10)
  - Osmotic demyelination syndrome [Unknown]
  - Paraparesis [Not Recovered/Not Resolved]
  - Confusional state [Unknown]
  - Disorientation [Unknown]
  - Somnolence [Unknown]
  - Quadriparesis [Unknown]
  - Dysarthria [Not Recovered/Not Resolved]
  - Dysphagia [Unknown]
  - Grand mal convulsion [Unknown]
  - Hyponatraemia [Unknown]
